FAERS Safety Report 8058837-6 (Version None)
Quarter: 2012Q1

REPORT INFORMATION
  Report Type: 
  Country: None (occurrence: None)
  Receive Date: 20120120
  Receipt Date: 20111202
  Transmission Date: 20120608
  Serious: No
  Sender: FDA-Public Use
  Company Number: US-BRISTOL-MYERS SQUIBB COMPANY-16264723

PATIENT
  Age: 60 Year
  Sex: Female

DRUGS (1)
  1. YERVOY [Suspect]
     Dosage: LAST DOSE WAS ON 18-NOV-2011

REACTIONS (1)
  - INFLAMMATION [None]
